FAERS Safety Report 10561806 (Version 1)
Quarter: 2014Q4

REPORT INFORMATION
  Report Type: Spontaneous
  Country: TR (occurrence: TR)
  Receive Date: 20141103
  Receipt Date: 20141103
  Transmission Date: 20150529
  Serious: Yes (Death, Other)
  Sender: FDA-Public Use
  Company Number: PHHY2014TR141308

PATIENT
  Age: 43 Year
  Sex: Female

DRUGS (1)
  1. LANSOPRAZOLE. [Suspect]
     Active Substance: LANSOPRAZOLE
     Indication: DYSPEPSIA
     Dosage: 30 MG, UNK
     Route: 065

REACTIONS (14)
  - Cardiac arrest [Not Recovered/Not Resolved]
  - Metabolic acidosis [Not Recovered/Not Resolved]
  - Oliguria [Unknown]
  - Periorbital oedema [Recovering/Resolving]
  - Loss of consciousness [Not Recovered/Not Resolved]
  - Lactic acidosis [Not Recovered/Not Resolved]
  - Rash generalised [Recovering/Resolving]
  - Death [Fatal]
  - Anaphylactic reaction [Not Recovered/Not Resolved]
  - Respiratory arrest [Not Recovered/Not Resolved]
  - Hypoxia [Not Recovered/Not Resolved]
  - Brain oedema [Unknown]
  - Hepatic enzyme increased [Not Recovered/Not Resolved]
  - Multi-organ failure [Not Recovered/Not Resolved]
